FAERS Safety Report 7684722-5 (Version None)
Quarter: 2011Q3

REPORT INFORMATION
  Report Type: 
  Country: None (occurrence: None)
  Receive Date: 20110816
  Receipt Date: 20110808
  Transmission Date: 20111222
  Serious: Yes (Other)
  Sender: FDA-Public Use
  Company Number: US-CEPHALON-US022239

PATIENT
  Age: 35 Year
  Sex: Male
  Weight: 123 kg

DRUGS (7)
  1. PAXIL [Suspect]
     Indication: DEPRESSION
     Route: 048
  2. CONCERTA [Suspect]
     Route: 048
  3. TESTOSTERONE [Suspect]
     Route: 065
  4. RITALIN [Suspect]
     Route: 065
  5. DOXEPIN [Suspect]
     Indication: DEPRESSION
     Route: 048
  6. PROVIGIL [Suspect]
     Route: 048
  7. FINASTERIDE [Suspect]
     Route: 048

REACTIONS (5)
  - AGGRESSION [None]
  - TREMOR [None]
  - HOMICIDE [None]
  - LOSS OF CONSCIOUSNESS [None]
  - CHILD ABUSE [None]
